FAERS Safety Report 11239729 (Version 1)
Quarter: 2015Q3

REPORT INFORMATION
  Report Type: Spontaneous
  Country: US (occurrence: US)
  Receive Date: 20150706
  Receipt Date: 20150706
  Transmission Date: 20151125
  Serious: Yes (Other)
  Sender: FDA-Public Use
  Company Number: PHEH2015US010097

PATIENT
  Sex: Male
  Weight: 122 kg

DRUGS (6)
  1. LOSARTAN POTASSIUM. [Concomitant]
     Active Substance: LOSARTAN POTASSIUM
     Indication: PRODUCT USED FOR UNKNOWN INDICATION
     Dosage: 25 MG, DAILY
     Route: 048
  2. BYSTOLIC [Concomitant]
     Active Substance: NEBIVOLOL HYDROCHLORIDE
     Indication: PRODUCT USED FOR UNKNOWN INDICATION
     Dosage: 10 MG, DAILY
     Route: 048
  3. GLEEVEC [Suspect]
     Active Substance: IMATINIB MESYLATE
     Indication: GASTROINTESTINAL STROMAL TUMOUR
     Dosage: 400 MG, DAILY
     Route: 048
  4. AMLODIPINE BESYLATE. [Concomitant]
     Active Substance: AMLODIPINE BESYLATE
     Indication: PRODUCT USED FOR UNKNOWN INDICATION
     Dosage: 10 MG, DAILY
     Route: 048
  5. ALEVE [Concomitant]
     Active Substance: NAPROXEN SODIUM
     Indication: PRODUCT USED FOR UNKNOWN INDICATION
     Dosage: 220 MG, BID PRN
     Route: 048
  6. HCTZ [Concomitant]
     Active Substance: HYDROCHLOROTHIAZIDE
     Indication: PRODUCT USED FOR UNKNOWN INDICATION
     Dosage: 25 MG, DAILY
     Route: 048

REACTIONS (16)
  - Blood glucose increased [Unknown]
  - Aspartate aminotransferase increased [Unknown]
  - Gingival injury [Unknown]
  - Oedema peripheral [Not Recovered/Not Resolved]
  - Dyspnoea [Unknown]
  - Dysphagia [Recovered/Resolved]
  - Oral pain [Unknown]
  - Infection [Recovered/Resolved]
  - Osteonecrosis of jaw [Recovering/Resolving]
  - Fatigue [Unknown]
  - Mucosal erosion [Unknown]
  - Blood lactate dehydrogenase increased [Unknown]
  - Weight decreased [Unknown]
  - Myalgia [Not Recovered/Not Resolved]
  - Alanine aminotransferase increased [Unknown]
  - Neck pain [Unknown]
